FAERS Safety Report 10691203 (Version 2)
Quarter: 2015Q1

REPORT INFORMATION
  Report Type: Spontaneous
  Country: US (occurrence: US)
  Receive Date: 20150105
  Receipt Date: 20150105
  Transmission Date: 20150720
  Serious: Yes (Hospitalization, Other)
  Sender: FDA-Public Use
  Company Number: US-PFIZER INC-2014322249

PATIENT
  Age: 53 Year
  Sex: Female

DRUGS (14)
  1. LEVOTHYROXINE [Concomitant]
     Active Substance: LEVOTHYROXINE
     Dosage: 125 MG, UNK
  2. ASPIRIN. [Concomitant]
     Active Substance: ASPIRIN
     Dosage: 81 MG, UNK
     Dates: start: 2007
  3. JANUVIA [Concomitant]
     Active Substance: SITAGLIPTIN PHOSPHATE
     Dosage: 100 MG, UNK
  4. CALCITONIN [Concomitant]
     Active Substance: CALCITONIN
     Dosage: 200 IU, UNK
     Dates: start: 201409
  5. DIOVAN [Concomitant]
     Active Substance: VALSARTAN
     Dosage: 160 MG, UNK
  6. LATUDA [Concomitant]
     Active Substance: LURASIDONE HYDROCHLORIDE
     Dosage: 60 MG, UNK
     Dates: start: 201412
  7. GABAPENTIN. [Concomitant]
     Active Substance: GABAPENTIN
     Dosage: UNK
  8. ATORVASTATIN [Concomitant]
     Active Substance: ATORVASTATIN
     Dosage: 10 MG, UNK
  9. TRAZODONE [Concomitant]
     Active Substance: TRAZODONE HYDROCHLORIDE
     Dosage: 150 MG, UNK
  10. VITAMIN D [Concomitant]
     Active Substance: CHOLECALCIFEROL
     Dosage: 2000 MG, UNK
  11. REVATIO [Suspect]
     Active Substance: SILDENAFIL CITRATE
     Indication: PULMONARY HYPERTENSION
     Dosage: 60 MG, 3X/DAY (20MG 3 TABLETS/3 TIMES/ TOTAL OF 9 PER DAY)
     Dates: start: 2007
  12. GLIPIZIDE. [Concomitant]
     Active Substance: GLIPIZIDE
     Dosage: 10 MG, UNK
  13. GABAPENTIN. [Concomitant]
     Active Substance: GABAPENTIN
     Dosage: 100 MG, UNK
  14. LORAZEPAM. [Concomitant]
     Active Substance: LORAZEPAM
     Dosage: 1 MG, UNK
     Dates: start: 201409

REACTIONS (3)
  - Blood calcium abnormal [Recovered/Resolved]
  - Renal failure [Recovered/Resolved]
  - Heart rate decreased [Recovered/Resolved]
